FAERS Safety Report 9425882 (Version 3)
Quarter: 2013Q3

REPORT INFORMATION
  Report Type: Report from Study
  Country: JP (occurrence: JP)
  Receive Date: 20130729
  Receipt Date: 20130903
  Transmission Date: 20140515
  Serious: Yes (Hospitalization, Other)
  Sender: FDA-Public Use
  Company Number: JP-OTSUKA-JP-2013-12642

PATIENT
  Age: 69 Year
  Sex: Male

DRUGS (8)
  1. SAMSCA [Suspect]
     Indication: FLUID RETENTION
     Dosage: 7.5 MG MILLIGRAM(S), QAM
     Route: 048
     Dates: start: 20130614, end: 20130616
  2. MYOCOR [Concomitant]
     Dosage: 240 MG MILLIGRAM(S), DAILY DOSE
     Route: 041
     Dates: start: 20130614, end: 20130616
  3. LASIX [Concomitant]
     Indication: CARDIAC FAILURE
     Dosage: 20 MG MILLIGRAM(S), DAILY DOSE
     Route: 042
     Dates: start: 20130614, end: 20130619
  4. HANP [Concomitant]
     Indication: CARDIAC FAILURE
     Dosage: 2400 MCG, DAILY DOSE
     Route: 042
     Dates: start: 20130614, end: 20130622
  5. HUMULIN R [Concomitant]
     Dosage: 70 IU, DAILY DOSE
     Route: 042
     Dates: start: 20130614, end: 20130702
  6. RENIVACE [Concomitant]
     Indication: CARDIAC FAILURE
     Dosage: 5 MG MILLIGRAM(S), DAILY DOSE
     Route: 051
     Dates: start: 20130614
  7. NICARDIPINE HYDROCHLORIDE [Concomitant]
     Dosage: 144 MG MILLIGRAM(S), DAILY DOSE
     Route: 041
     Dates: start: 20130617, end: 20130628
  8. ONOACT [Concomitant]
     Indication: SUPRAVENTRICULAR TACHYCARDIA
     Dosage: 1440 MG MILLIGRAM(S), DAILY DOSE
     Route: 041
     Dates: start: 20130614, end: 20130702

REACTIONS (7)
  - Supraventricular tachycardia [Recovering/Resolving]
  - Haemorrhagic cerebral infarction [Recovered/Resolved with Sequelae]
  - Ventricular tachycardia [Recovered/Resolved]
  - Atrial fibrillation [Not Recovered/Not Resolved]
  - Pyrexia [Recovering/Resolving]
  - Restlessness [Unknown]
  - Hypokalaemia [Recovered/Resolved]
